FAERS Safety Report 6435363-9 (Version None)
Quarter: 2009Q4

REPORT INFORMATION
  Report Type: 
  Country: None (occurrence: None)
  Receive Date: 20091110
  Receipt Date: 20091105
  Transmission Date: 20100525
  Serious: Yes (Hospitalization)
  Sender: FDA-Public Use
  Company Number: DE-MERCK-0908DEU00054

PATIENT
  Age: 74 Year
  Sex: Female
  Weight: 58 kg

DRUGS (1)
  1. SIMVASTATIN AL [Suspect]
     Indication: HYPERCHOLESTEROLAEMIA
     Route: 048
     Dates: start: 20090601, end: 20090701

REACTIONS (5)
  - CHOLELITHIASIS [None]
  - DIVERTICULUM INTESTINAL [None]
  - LARGE INTESTINAL ULCER [None]
  - LIVER DISORDER [None]
  - RHEUMATOID ARTHRITIS [None]
